FAERS Safety Report 25173100 (Version 1)
Quarter: 2025Q2

REPORT INFORMATION
  Report Type: Spontaneous
  Country: FR (occurrence: FR)
  Receive Date: 20250408
  Receipt Date: 20250408
  Transmission Date: 20250716
  Serious: Yes (Hospitalization)
  Sender: MYLAN
  Company Number: FR-MYLANLABS-2025M1030638

PATIENT
  Age: 16 Year
  Sex: Female

DRUGS (40)
  1. CITALOPRAM [Suspect]
     Active Substance: CITALOPRAM
     Indication: Product used for unknown indication
  2. CITALOPRAM [Suspect]
     Active Substance: CITALOPRAM
     Route: 048
  3. CITALOPRAM [Suspect]
     Active Substance: CITALOPRAM
     Route: 048
  4. CITALOPRAM [Suspect]
     Active Substance: CITALOPRAM
  5. ESCITALOPRAM [Suspect]
     Active Substance: ESCITALOPRAM OXALATE
     Indication: Product used for unknown indication
  6. ESCITALOPRAM [Suspect]
     Active Substance: ESCITALOPRAM OXALATE
     Route: 048
  7. ESCITALOPRAM [Suspect]
     Active Substance: ESCITALOPRAM OXALATE
     Route: 048
  8. ESCITALOPRAM [Suspect]
     Active Substance: ESCITALOPRAM OXALATE
  9. PAROXETINE [Suspect]
     Active Substance: PAROXETINE
     Indication: Product used for unknown indication
  10. PAROXETINE [Suspect]
     Active Substance: PAROXETINE
     Route: 048
  11. PAROXETINE [Suspect]
     Active Substance: PAROXETINE
     Route: 048
  12. PAROXETINE [Suspect]
     Active Substance: PAROXETINE
  13. SERTRALINE [Suspect]
     Active Substance: SERTRALINE HYDROCHLORIDE
     Indication: Anxiety
  14. SERTRALINE [Suspect]
     Active Substance: SERTRALINE HYDROCHLORIDE
     Indication: Depression
     Route: 048
  15. SERTRALINE [Suspect]
     Active Substance: SERTRALINE HYDROCHLORIDE
     Route: 048
  16. SERTRALINE [Suspect]
     Active Substance: SERTRALINE HYDROCHLORIDE
  17. VENLAFAXINE [Suspect]
     Active Substance: VENLAFAXINE HYDROCHLORIDE
     Indication: Product used for unknown indication
  18. VENLAFAXINE [Suspect]
     Active Substance: VENLAFAXINE HYDROCHLORIDE
     Route: 048
  19. VENLAFAXINE [Suspect]
     Active Substance: VENLAFAXINE HYDROCHLORIDE
     Route: 048
  20. VENLAFAXINE [Suspect]
     Active Substance: VENLAFAXINE HYDROCHLORIDE
  21. ACETAMINOPHEN [Suspect]
     Active Substance: ACETAMINOPHEN
     Indication: Product used for unknown indication
  22. ACETAMINOPHEN [Suspect]
     Active Substance: ACETAMINOPHEN
     Route: 065
  23. ACETAMINOPHEN [Suspect]
     Active Substance: ACETAMINOPHEN
     Route: 065
  24. ACETAMINOPHEN [Suspect]
     Active Substance: ACETAMINOPHEN
  25. TRIHEXYPHENIDYL [Suspect]
     Active Substance: TRIHEXYPHENIDYL
     Indication: Drug abuse
  26. TRIHEXYPHENIDYL [Suspect]
     Active Substance: TRIHEXYPHENIDYL
     Route: 048
  27. TRIHEXYPHENIDYL [Suspect]
     Active Substance: TRIHEXYPHENIDYL
     Route: 048
  28. TRIHEXYPHENIDYL [Suspect]
     Active Substance: TRIHEXYPHENIDYL
  29. ARIPIPRAZOLE [Concomitant]
     Active Substance: ARIPIPRAZOLE
     Indication: Depression
  30. ARIPIPRAZOLE [Concomitant]
     Active Substance: ARIPIPRAZOLE
     Route: 065
  31. ARIPIPRAZOLE [Concomitant]
     Active Substance: ARIPIPRAZOLE
     Route: 065
  32. ARIPIPRAZOLE [Concomitant]
     Active Substance: ARIPIPRAZOLE
  33. HYDROXYZINE [Concomitant]
     Active Substance: HYDROXYZINE HYDROCHLORIDE
     Indication: Anxiety
  34. HYDROXYZINE [Concomitant]
     Active Substance: HYDROXYZINE HYDROCHLORIDE
     Route: 065
  35. HYDROXYZINE [Concomitant]
     Active Substance: HYDROXYZINE HYDROCHLORIDE
     Route: 065
  36. HYDROXYZINE [Concomitant]
     Active Substance: HYDROXYZINE HYDROCHLORIDE
  37. CETIRIZINE [Concomitant]
     Active Substance: CETIRIZINE HYDROCHLORIDE
     Indication: Product used for unknown indication
  38. CETIRIZINE [Concomitant]
     Active Substance: CETIRIZINE HYDROCHLORIDE
     Route: 065
  39. CETIRIZINE [Concomitant]
     Active Substance: CETIRIZINE HYDROCHLORIDE
     Route: 065
  40. CETIRIZINE [Concomitant]
     Active Substance: CETIRIZINE HYDROCHLORIDE

REACTIONS (7)
  - Suicide attempt [Unknown]
  - Suicidal ideation [Unknown]
  - Drug abuse [Recovering/Resolving]
  - Toxicity to various agents [Recovering/Resolving]
  - Confusional state [Recovered/Resolved]
  - Hallucinations, mixed [Recovered/Resolved]
  - Sinus tachycardia [Unknown]
